FAERS Safety Report 15646941 (Version 2)
Quarter: 2019Q4

REPORT INFORMATION
  Report Type: Report from Study
  Country: BE (occurrence: BE)
  Receive Date: 20181122
  Receipt Date: 20191216
  Transmission Date: 20200122
  Serious: Yes (Hospitalization)
  Sender: FDA-Public Use
  Company Number: BE-ACCORD-092892

PATIENT
  Age: 69 Year
  Sex: Female
  Weight: 67 kg

DRUGS (11)
  1. FARLETUZUMAB [Suspect]
     Active Substance: FARLETUZUMAB
     Indication: OVARIAN CANCER
     Dosage: BLINDED 10 MG/KG OR PLACEBO (1 IN 1 WK)
     Route: 042
     Dates: start: 20180903, end: 20180910
  2. LIXIANA [Concomitant]
     Active Substance: EDOXABAN TOSYLATE
  3. DAFALGAN [Concomitant]
     Active Substance: ACETAMINOPHEN
  4. ZOLPIDEM/ZOLPIDEM TARTRATE [Concomitant]
     Active Substance: ZOLPIDEM TARTRATE
  5. CAELYX [Suspect]
     Active Substance: DOXORUBICIN HYDROCHLORIDE
     Indication: OVARIAN CANCER
     Dosage: 30 MG/M2, CYCLIC (EVERY 4 WEEKS)
     Route: 042
     Dates: start: 20180903
  6. CAELYX [Suspect]
     Active Substance: DOXORUBICIN HYDROCHLORIDE
     Indication: OVARIAN CANCER
     Dosage: 30 MG/M2, CYCLIC (EVERY 4 WEEKS)
     Route: 042
     Dates: start: 20180903, end: 20180903
  7. CARBOPLATIN. [Suspect]
     Active Substance: CARBOPLATIN
     Indication: OVARIAN CANCER
     Dosage: 5 AUC, CYCLIC
     Route: 042
     Dates: start: 20180903, end: 20180903
  8. CALEYX [Suspect]
     Active Substance: DOXORUBICIN HYDROCHLORIDE
     Indication: OVARIAN CANCER
     Dosage: 30 MG/M2, CYCLIC (EVERY 4 WEEKS)
     Route: 042
     Dates: start: 20180903, end: 20180903
  9. DULCOLAX NOS [Concomitant]
     Active Substance: BISACODYL OR DOCUSATE SODIUM
  10. BISOPROLOL/BISOPROLOL FUMARATE/BISOPROLOL HEMIFUMARATE [Concomitant]
     Active Substance: BISOPROLOL
  11. APOCARD [Concomitant]
     Active Substance: FLECAINIDE ACETATE

REACTIONS (1)
  - Febrile neutropenia [Recovered/Resolved]

NARRATIVE: CASE EVENT DATE: 20180917
